FAERS Safety Report 8670990 (Version 3)
Quarter: 2012Q4

REPORT INFORMATION
  Report Type: 
  Country: US (occurrence: US)
  Receive Date: 20120718
  Receipt Date: 20120828
  Transmission Date: 20130627
  Serious: Yes (Other)
  Sender: FDA-Public Use
  Company Number: US-BRISTOL-MYERS SQUIBB COMPANY-16753592

PATIENT
  Age: 79 Year
  Sex: Female

DRUGS (2)
  1. ONGLYZA TABS 5 MG [Suspect]
     Indication: DIABETES MELLITUS
     Route: 048
  2. PREDNISONE [Concomitant]

REACTIONS (3)
  - Pancreatic disorder [Unknown]
  - Gastric disorder [Unknown]
  - Abdominal pain upper [Unknown]
